FAERS Safety Report 12119062 (Version 2)
Quarter: 2017Q3

REPORT INFORMATION
  Report Type: Spontaneous
  Country: US (occurrence: US)
  Receive Date: 20160226
  Receipt Date: 20170721
  Transmission Date: 20171127
  Serious: Yes (Other)
  Sender: FDA-Public Use
  Company Number: US-PURDUE-USA-2015-0127909

PATIENT
  Age: 31 Year
  Sex: Female

DRUGS (3)
  1. HYDROCODONE BITARTRATE (SIMILAR TO NDA 206627) [Suspect]
     Active Substance: HYDROCODONE BITARTRATE
     Indication: PAIN
     Dosage: UNK
     Dates: start: 20140612
  2. HYDROCODONE BITARTRATE (SIMILAR TO NDA 206627) [Suspect]
     Active Substance: HYDROCODONE BITARTRATE
     Indication: DRUG USE DISORDER
     Dosage: UNK
     Route: 048
  3. METHAMPHETAMINE [Suspect]
     Active Substance: METHAMPHETAMINE
     Indication: DRUG USE DISORDER
     Dosage: UNK
     Route: 055
     Dates: start: 2014

REACTIONS (6)
  - Child neglect [Unknown]
  - Exposure during pregnancy [Unknown]
  - Exposure during breast feeding [Unknown]
  - Drug dependence [Unknown]
  - Drug abuse [Unknown]
  - Euphoric mood [Unknown]

NARRATIVE: CASE EVENT DATE: 201406
